FAERS Safety Report 15326011 (Version 1)
Quarter: 2018Q3

REPORT INFORMATION
  Report Type: Spontaneous
  Country: JP (occurrence: JP)
  Receive Date: 20180828
  Receipt Date: 20180828
  Transmission Date: 20181010
  Serious: Yes (Other)
  Sender: FDA-Public Use
  Company Number: JP-MYLANLABS-2018M1063768

PATIENT
  Age: 43 Year
  Sex: Male
  Weight: 64 kg

DRUGS (3)
  1. THIAMINE [Suspect]
     Active Substance: THIAMINE
     Indication: VITAMIN B1 DEFICIENCY
     Route: 042
  2. FOLATE [Suspect]
     Active Substance: FOLATE SODIUM
     Indication: FOLATE DEFICIENCY
     Route: 048
  3. VITAMIN B12 [Concomitant]
     Active Substance: CYANOCOBALAMIN
     Indication: VITAMIN B12 DEFICIENCY
     Route: 042

REACTIONS (1)
  - Peripheral T-cell lymphoma unspecified [Unknown]
